FAERS Safety Report 25334628 (Version 3)
Quarter: 2025Q2

REPORT INFORMATION
  Report Type: Report from Study
  Country: US (occurrence: US)
  Receive Date: 20250520
  Receipt Date: 20250616
  Transmission Date: 20250716
  Serious: Yes (Hospitalization, Other)
  Sender: ACADIA PHARMACEUTICALS
  Company Number: US-ACADIA PHARMACEUTICALS INC.-ACA-2025-PIM-005835

PATIENT
  Age: 82 Year
  Sex: Female

DRUGS (29)
  1. NUPLAZID [Suspect]
     Active Substance: PIMAVANSERIN TARTRATE
     Indication: Parkinson^s disease
     Dosage: 34 MILLIGRAM, QD, TAKING NUPLAZID AT NIGHT
     Route: 048
     Dates: start: 20250506
  2. NUPLAZID [Suspect]
     Active Substance: PIMAVANSERIN TARTRATE
     Indication: Parkinson^s disease psychosis
  3. QUETIAPINE FUMARATE [Concomitant]
     Active Substance: QUETIAPINE FUMARATE
  4. ATORVASTATIN [Concomitant]
     Active Substance: ATORVASTATIN
  5. CARBIDOPA [Concomitant]
     Active Substance: CARBIDOPA
  6. PULMICORT TURBUHALER [Concomitant]
     Active Substance: BUDESONIDE
  7. DONEPEZIL [Concomitant]
     Active Substance: DONEPEZIL
  8. LEVETIRACETAM [Concomitant]
     Active Substance: LEVETIRACETAM
  9. CELECOXIB [Concomitant]
     Active Substance: CELECOXIB
  10. LAMOTRIGINE [Concomitant]
     Active Substance: LAMOTRIGINE
  11. PREGABALIN [Concomitant]
     Active Substance: PREGABALIN
  12. SENNA S [Concomitant]
     Active Substance: DOCUSATE SODIUM\SENNOSIDES
  13. CARBIDOPA LEVODOPA [Concomitant]
     Active Substance: CARBIDOPA\LEVODOPA
  14. ALBUTEROL SULFATE [Concomitant]
     Active Substance: ALBUTEROL SULFATE
  15. LISINOPRIL [Concomitant]
     Active Substance: LISINOPRIL
  16. SPIRIVA [Concomitant]
     Active Substance: TIOTROPIUM BROMIDE MONOHYDRATE
  17. ONDANSETRON [Concomitant]
     Active Substance: ONDANSETRON
  18. CRANBERRY PROBIOTICS [Concomitant]
  19. IRON [Concomitant]
     Active Substance: IRON
  20. PROBIOTICS [PROBIOTICS NOS] [Concomitant]
  21. STIOLTO RESPIMAT [Concomitant]
     Active Substance: OLODATEROL HYDROCHLORIDE\TIOTROPIUM BROMIDE MONOHYDRATE
  22. HYDRALAZINE HCL [Concomitant]
     Active Substance: HYDRALAZINE HYDROCHLORIDE
  23. METHENAMINE HIPPURATE [Concomitant]
     Active Substance: METHENAMINE HIPPURATE
  24. CREON [Concomitant]
     Active Substance: PANCRELIPASE AMYLASE\PANCRELIPASE LIPASE\PANCRELIPASE PROTEASE
  25. METFORMIN HYDROCHLORIDE [Concomitant]
     Active Substance: METFORMIN HYDROCHLORIDE
  26. ONDANSETRON HYDROCHLORIDE [Concomitant]
     Active Substance: ONDANSETRON HYDROCHLORIDE
  27. CITALOPRAM HYDROBROMIDE [Concomitant]
     Active Substance: CITALOPRAM HYDROBROMIDE
  28. ATORVASTATIN CALCIUM [Concomitant]
     Active Substance: ATORVASTATIN CALCIUM
  29. DONEPEZIL HYDROCHLORIDE [Concomitant]
     Active Substance: DONEPEZIL HYDROCHLORIDE

REACTIONS (11)
  - Urinary tract infection [Not Recovered/Not Resolved]
  - Arrhythmia [Unknown]
  - Hallucination [Unknown]
  - Diarrhoea [Not Recovered/Not Resolved]
  - Delusion [Not Recovered/Not Resolved]
  - Blood glucose increased [Unknown]
  - Blood pressure diastolic abnormal [Unknown]
  - Adverse drug reaction [Unknown]
  - Somnolence [Unknown]
  - Confusional state [Not Recovered/Not Resolved]
  - Drug ineffective [Unknown]

NARRATIVE: CASE EVENT DATE: 20250513
